FAERS Safety Report 4330963-4 (Version None)
Quarter: 2004Q1

REPORT INFORMATION
  Report Type: 
  Country: None (occurrence: None)
  Receive Date: 20040331
  Receipt Date: 20040324
  Transmission Date: 20041129
  Serious: Yes (Other)
  Sender: FDA-Public Use
  Company Number: 2004203294US

PATIENT
  Age: 55 Year
  Sex: Male
  Weight: 90.7 kg

DRUGS (7)
  1. SOLU-MEDROL [Suspect]
     Indication: MULTIPLE SCLEROSIS
     Dosage: 1 G, QD, IV
     Route: 042
     Dates: start: 20040309, end: 20040311
  2. SOLU-MEDROL [Suspect]
  3. LISINOPRIL [Concomitant]
  4. OXYCONTIN [Concomitant]
  5. PERCOCET (OXYCODONE HYDROCHLORIDE, OXYCODONE TEREPHTHALATE) [Concomitant]
  6. COPAXONE [Concomitant]
  7. MULTIVITAMIN [Concomitant]

REACTIONS (2)
  - RED MAN SYNDROME [None]
  - SUNBURN [None]
